FAERS Safety Report 4371130-8 (Version None)
Quarter: 2004Q2

REPORT INFORMATION
  Report Type: 
  Country: None (occurrence: None)
  Receive Date: 20040601
  Receipt Date: 20040520
  Transmission Date: 20050107
  Serious: Yes (Hospitalization, Disabling)
  Sender: FDA-Public Use
  Company Number: 2004-05-1598

PATIENT
  Age: 52 Year
  Sex: Male
  Weight: 85 kg

DRUGS (15)
  1. PEG-INTRON [Suspect]
     Indication: HEPATITIS C
     Dosage: 120 MCG QWK SUBCUTANEOUS
     Route: 058
     Dates: start: 20031201, end: 20040201
  2. RIBAVIRIN [Suspect]
     Indication: HEPATITIS C
     Dosage: 1200 MG QD ORAL
     Route: 048
     Dates: start: 20031101
  3. PEGASYS [Suspect]
     Indication: HEPATITIS C
     Dosage: 80 MCG QWK
     Dates: start: 20041101, end: 20041201
  4. THIAMINE HCL [Concomitant]
  5. VITAMIN B-12 [Concomitant]
  6. VOLTAREN [Concomitant]
  7. ESSENTIALE [Concomitant]
  8. DOXYCYCLINE [Concomitant]
  9. PROFENID [Concomitant]
  10. ANTI-DIABETIC NOS [Concomitant]
  11. FENICORT [Concomitant]
  12. RANIGAST [Concomitant]
  13. ENCORTON [Concomitant]
  14. XYLOCAINE [Concomitant]
  15. DICLOFENAC SODIUM [Concomitant]

REACTIONS (12)
  - ARTHRALGIA [None]
  - ASTHENIA [None]
  - CEREBROVASCULAR DISORDER [None]
  - DEMYELINATION [None]
  - DIFFICULTY IN WALKING [None]
  - MULTIPLE SCLEROSIS [None]
  - PARAESTHESIA [None]
  - PERIPHERAL SENSORY NEUROPATHY [None]
  - POLYNEUROPATHY [None]
  - PYREXIA [None]
  - TINNITUS [None]
  - VASCULITIS [None]
